FAERS Safety Report 9933183 (Version 1)
Quarter: 2014Q1

REPORT INFORMATION
  Report Type: Spontaneous
  Country: US (occurrence: None)
  Receive Date: 20140226
  Receipt Date: 20140226
  Transmission Date: 20141002
  Serious: Yes (Other)
  Sender: FDA-Public Use
  Company Number: 13-05096

PATIENT
  Sex: Female

DRUGS (1)
  1. ALBUTEROL SULFATE INHALATION SOLUTION, 0.083% [Suspect]
     Indication: NASOPHARYNGITIS
     Dosage: 054
     Dates: start: 20131009, end: 20131031

REACTIONS (4)
  - Pneumonia [None]
  - Cough [None]
  - Heart rate increased [None]
  - Blood pressure increased [None]
